FAERS Safety Report 6594726-1 (Version None)
Quarter: 2010Q1

REPORT INFORMATION
  Report Type: 
  Country: None (occurrence: None)
  Receive Date: 20100222
  Receipt Date: 20100208
  Transmission Date: 20100710
  Serious: Yes (Hospitalization)
  Sender: FDA-Public Use
  Company Number: CN-MYLANLABS-2010S1001994

PATIENT
  Age: 52 Year
  Sex: Female

DRUGS (1)
  1. FENOFIBRATE [Suspect]
     Indication: DYSLIPIDAEMIA
     Route: 065

REACTIONS (3)
  - ANAEMIA [None]
  - RENAL FAILURE [None]
  - RHABDOMYOLYSIS [None]
